FAERS Safety Report 12401230 (Version 1)
Quarter: 2016Q2

REPORT INFORMATION
  Report Type: Spontaneous
  Country: JP (occurrence: JP)
  Receive Date: 20160525
  Receipt Date: 20160525
  Transmission Date: 20160815
  Serious: Yes (Other)
  Sender: FDA-Public Use
  Company Number: JP-GLAXOSMITHKLINE-JP2016GSK063537

PATIENT
  Age: 80 Year
  Sex: Female

DRUGS (1)
  1. VOLTAREN [Suspect]
     Active Substance: DICLOFENAC SODIUM
     Indication: WOUND COMPLICATION
     Dosage: 50 MG, UNK
     Route: 054

REACTIONS (3)
  - Pallor [Unknown]
  - Pulse absent [Unknown]
  - Blood pressure systolic decreased [Unknown]
